FAERS Safety Report 7795001 (Version 4)
Quarter: 2013Q2

REPORT INFORMATION
  Report Type: Spontaneous
  Country: US (occurrence: US)
  Receive Date: 20110201
  Receipt Date: 20130417
  Transmission Date: 20140414
  Serious: Yes (Hospitalization, Other)
  Sender: FDA-Public Use
  Company Number: US-BAYER-2011-005762

PATIENT
  Age: 44 Year
  Sex: Female
  Weight: 68 kg

DRUGS (9)
  1. YASMIN [Suspect]
     Indication: CONTRACEPTION
     Dosage: UNK
     Route: 048
     Dates: start: 200111, end: 2006
  2. ANTIBIOTICS [Concomitant]
     Dosage: UNK
     Dates: start: 2006
  3. NSAID^S [Concomitant]
     Dosage: UNK
     Dates: start: 2006
  4. ALLEGRA [Concomitant]
     Dosage: UNK
     Dates: start: 2001, end: 2006
  5. DARVOCET-N [Concomitant]
     Dosage: 650 MG, 1 TABLET EVERY 4 TO 6 HOURS
     Route: 048
     Dates: start: 20020118, end: 20060817
  6. DARVOCET-N [Concomitant]
     Dosage: 100 MG, 1 TABLET EVERY 4 TO 6 HOURS
     Route: 048
     Dates: start: 20020118, end: 20060817
  7. SILVER SULFADIAZINE [Concomitant]
     Dosage: UNK UNK, TID
     Route: 061
     Dates: start: 20030505, end: 20030609
  8. CIPROFLOXACIN [Concomitant]
  9. MOTRIN [Concomitant]

REACTIONS (7)
  - Deep vein thrombosis [None]
  - Anxiety [None]
  - Pain [None]
  - Emotional distress [None]
  - Synovial rupture [None]
  - Thrombophlebitis [None]
  - Oedema peripheral [None]
